FAERS Safety Report 10883292 (Version 1)
Quarter: 2015Q1

REPORT INFORMATION
  Report Type: Spontaneous
  Country: AU (occurrence: AU)
  Receive Date: 20150303
  Receipt Date: 20150303
  Transmission Date: 20150721
  Serious: Yes (Other)
  Sender: FDA-Public Use
  Company Number: PHHY2015AU023246

PATIENT
  Sex: Female

DRUGS (2)
  1. OXALIPLATIN EBEWE [Suspect]
     Active Substance: OXALIPLATIN
     Indication: PRODUCT USED FOR UNKNOWN INDICATION
     Dosage: UNK
     Route: 065
     Dates: start: 201205, end: 201209
  2. OXALIPLATIN EBEWE [Suspect]
     Active Substance: OXALIPLATIN
     Dosage: 100 MG, UNK
     Route: 065

REACTIONS (2)
  - Paraesthesia [Unknown]
  - Speech disorder [Unknown]
